FAERS Safety Report 7369023-7 (Version None)
Quarter: 2011Q1

REPORT INFORMATION
  Report Type: 
  Country: None (occurrence: None)
  Receive Date: 20110314
  Receipt Date: 20110228
  Transmission Date: 20110831
  Serious: Yes (Death)
  Sender: FDA-Public Use
  Company Number: DSU-2011-01526

PATIENT
  Sex: Male

DRUGS (1)
  1. NORMETEC (OLMESARTAN MEDOXOMIL, AMLODIPINE BESILATE) (TABLET) (OLMESAR [Suspect]
     Indication: PRODUCT USED FOR UNKNOWN INDICATION
     Dosage: PER ORAL
     Route: 048

REACTIONS (1)
  - THROMBOSIS [None]
